FAERS Safety Report 8357055-1 (Version None)
Quarter: 2012Q2

REPORT INFORMATION
  Report Type: 
  Country: None (occurrence: None)
  Receive Date: 20120514
  Receipt Date: 20120509
  Transmission Date: 20120825
  Serious: Yes (Other)
  Sender: FDA-Public Use
  Company Number: NL-PFIZER INC-2012099046

PATIENT
  Age: 23 Year
  Sex: Female
  Weight: 67 kg

DRUGS (5)
  1. OXYCONTIN [Suspect]
  2. GABAPENTIN [Suspect]
     Dosage: 100 MG, 3X/DAY
     Route: 048
  3. GABAPENTIN [Suspect]
     Dosage: 600 MG, 4X/DAY
     Route: 048
     Dates: start: 20120124, end: 20120309
  4. OXYNORM [Suspect]
  5. MORPHINE SULDATE [Suspect]
     Dosage: UNK
     Dates: start: 20120224, end: 20120229

REACTIONS (3)
  - NAUSEA [None]
  - PARALYSIS [None]
  - DIZZINESS [None]
